FAERS Safety Report 22144172 (Version 4)
Quarter: 2023Q2

REPORT INFORMATION
  Report Type: Report from Study
  Country: AU (occurrence: AU)
  Receive Date: 20230327
  Receipt Date: 20230516
  Transmission Date: 20230722
  Serious: Yes (Hospitalization, Other)
  Sender: FDA-Public Use
  Company Number: AU-BRISTOL-MYERS SQUIBB COMPANY-2023-039554

PATIENT
  Age: 64 Year
  Sex: Male
  Weight: 97 kg

DRUGS (48)
  1. DARATUMUMAB [Suspect]
     Active Substance: DARATUMUMAB
     Indication: Plasma cell myeloma
     Dosage: MOST RECENT DOSE OF DRUG ADMINISTERED ON 03-FEB-2023
     Route: 058
     Dates: start: 20230203
  2. DEXAMETHASONE [Concomitant]
     Active Substance: DEXAMETHASONE
     Indication: Plasma cell myeloma
     Dosage: MOST RECENT DOSE OF DRUG ADMINISTERED ON 03-FEB-2023
     Route: 048
     Dates: start: 20230203
  3. IBERDOMIDE [Concomitant]
     Active Substance: IBERDOMIDE
     Indication: Plasma cell myeloma
     Route: 048
     Dates: start: 20230203, end: 20230223
  4. DEXAMETHASONE [Concomitant]
     Active Substance: DEXAMETHASONE
     Indication: Arthralgia
     Dosage: 40 MG
     Route: 048
     Dates: start: 20230304, end: 20230308
  5. ASPIRIN [Concomitant]
     Active Substance: ASPIRIN
     Indication: Thrombosis prophylaxis
     Dosage: 100 MG
     Route: 048
     Dates: start: 2017, end: 20230224
  6. ASPIRIN [Concomitant]
     Active Substance: ASPIRIN
     Dosage: 100 MG
     Route: 048
     Dates: start: 20230303
  7. ATORVASTATIN [Concomitant]
     Active Substance: ATORVASTATIN
     Indication: Hyperlipidaemia
     Dosage: 40 MG
     Route: 048
     Dates: start: 2017
  8. BISOPROLOL [Concomitant]
     Active Substance: BISOPROLOL
     Indication: Hypertension
     Dosage: 2.5 MG
     Route: 048
     Dates: start: 202103
  9. CHOLECALCIFEROL [Concomitant]
     Active Substance: CHOLECALCIFEROL
     Indication: Nutritional supplementation
     Dosage: 0.025 MG
     Route: 048
     Dates: start: 202011
  10. FOLATE SODIUM [Concomitant]
     Active Substance: FOLATE SODIUM
     Indication: Nutritional supplementation
     Dosage: 5 MG
     Route: 048
     Dates: start: 202011
  11. MAGNESIUM [Concomitant]
     Active Substance: MAGNESIUM
     Indication: Nutritional supplementation
     Dosage: 240 MG
     Route: 048
     Dates: start: 202011
  12. MULTIVITAMIN [ASCORBIC ACID;CALCIUM PANTOTHENATE;COLECALCIFEROL;CYANOC [Concomitant]
     Indication: Nutritional supplementation
     Dosage: 1 CAPSULE
     Route: 048
     Dates: start: 202011
  13. OMEPRAZOLE [Concomitant]
     Active Substance: OMEPRAZOLE
     Indication: Gastrooesophageal reflux disease
     Dosage: 20 MG
     Route: 048
     Dates: start: 2017
  14. VALACYCLOVIR HYDROCHLORIDE [Concomitant]
     Active Substance: VALACYCLOVIR HYDROCHLORIDE
     Indication: Prophylaxis
     Dosage: 500 MG
     Route: 048
     Dates: start: 202011
  15. ZOLEDRONIC ACID [Concomitant]
     Active Substance: ZOLEDRONIC ACID
     Indication: Prophylaxis
     Dosage: 4 MG
     Route: 042
  16. CISPLATIN [Concomitant]
     Active Substance: CISPLATIN
     Indication: Arthralgia
     Dosage: 22 MG
     Route: 042
     Dates: start: 20230304, end: 20230307
  17. SENNA LEAF [Concomitant]
     Active Substance: SENNA LEAF
     Indication: Prophylaxis
     Dosage: 50/8 MG?FREQUENCY : PRN
     Route: 048
     Dates: start: 20230306
  18. CYCLIZINE [Concomitant]
     Active Substance: CYCLIZINE
     Indication: Prophylaxis
     Dosage: 10 MG?FREQUENCY : PRN
     Route: 048
     Dates: start: 20230310
  19. CYCLOPHOSPHAMIDE [Concomitant]
     Active Substance: CYCLOPHOSPHAMIDE
     Indication: Product used for unknown indication
     Dosage: 880 MG
     Route: 042
     Dates: start: 20230304, end: 20230307
  20. DOXORUBICIN [Concomitant]
     Active Substance: DOXORUBICIN
     Indication: Arthralgia
     Dosage: 22 MG
     Route: 042
     Dates: start: 20230304, end: 20230307
  21. OXYCODONE HYDROCHLORIDE [Concomitant]
     Active Substance: OXYCODONE HYDROCHLORIDE
     Indication: Arthralgia
     Dosage: 5 MG?FREQUENCY : INTERMITTENT
     Route: 048
     Dates: start: 20230203, end: 20230303
  22. ENOXAPARIN [Concomitant]
     Active Substance: ENOXAPARIN
     Indication: Prophylaxis
     Dosage: 40 MG
     Route: 048
     Dates: start: 20230224, end: 20230302
  23. ETOPOSIDE [Concomitant]
     Active Substance: ETOPOSIDE
     Indication: Adverse event
     Dosage: 88 MG
     Route: 042
     Dates: start: 20230304, end: 20230307
  24. LIDOCAINE [Concomitant]
     Active Substance: LIDOCAINE
     Indication: Prophylaxis
     Dosage: 1 %?FREQUENCY : ONCE
     Route: 065
     Dates: start: 20230303, end: 20230303
  25. LIPEGFILGRASTIM [Concomitant]
     Active Substance: LIPEGFILGRASTIM
     Indication: Prophylaxis
     Dosage: 6 MG
     Route: 058
     Dates: start: 20230308, end: 20230310
  26. METOCLOPRAMIDE [Concomitant]
     Active Substance: METOCLOPRAMIDE
     Indication: Nausea
     Dosage: 10 MG?FREQUENCY : INTERMITTENT
     Route: 048
     Dates: start: 20230117, end: 20230304
  27. NOVORAPID [Concomitant]
     Active Substance: INSULIN ASPART
     Indication: Hyperglycaemia
     Dosage: 10 U
     Route: 058
     Dates: start: 20230305, end: 20230305
  28. NOVORAPID [Concomitant]
     Active Substance: INSULIN ASPART
     Dosage: 5 U?FREQUENCY : ONCE
     Route: 058
     Dates: start: 20230306, end: 20230306
  29. NOVORAPID [Concomitant]
     Active Substance: INSULIN ASPART
     Dosage: 8 U?FREQUENCY : ONCE
     Route: 058
     Dates: start: 20230307, end: 20230307
  30. NOVORAPID [Concomitant]
     Active Substance: INSULIN ASPART
     Dosage: 1 U?FREQUENCY : ONCE
     Route: 058
     Dates: start: 20230308, end: 20230308
  31. OXYCODONE [Concomitant]
     Active Substance: OXYCODONE
     Indication: Arthralgia
     Dosage: 5 MG?FREQUENCY : PRN
     Route: 048
     Dates: start: 20230303
  32. BACTRIM [Concomitant]
     Active Substance: SULFAMETHOXAZOLE\TRIMETHOPRIM
     Indication: Prophylaxis
     Dosage: 800/160 MG
     Route: 048
     Dates: start: 20230203
  33. ALBUMIN HUMAN [Concomitant]
     Active Substance: ALBUMIN HUMAN
     Route: 042
     Dates: start: 20230315
  34. ALBUMIN HUMAN [Concomitant]
     Active Substance: ALBUMIN HUMAN
     Route: 042
     Dates: start: 20230315
  35. CALCIUM CHLORIDE [Concomitant]
     Active Substance: CALCIUM CHLORIDE
     Indication: Hypocalcaemia
     Route: 042
     Dates: start: 20230315, end: 20230316
  36. CALCIUM GLUCONATE [Concomitant]
     Active Substance: CALCIUM GLUCONATE
     Indication: Hypocalcaemia
     Route: 042
     Dates: start: 20230315
  37. FENTANYL [Concomitant]
     Active Substance: FENTANYL
     Indication: Pain
     Route: 060
     Dates: start: 20230315
  38. FENTANYL [Concomitant]
     Active Substance: FENTANYL
     Route: 060
     Dates: start: 20230329
  39. FOLIC ACID [Concomitant]
     Active Substance: FOLIC ACID
     Route: 048
     Dates: start: 20230315, end: 20230321
  40. MAGNESIUM SULFATE [Concomitant]
     Active Substance: MAGNESIUM SULFATE
     Indication: Hypomagnesaemia
     Route: 042
     Dates: start: 20230315, end: 20230315
  41. METARAMINOL [Concomitant]
     Active Substance: METARAMINOL
     Indication: Hypotension
     Route: 042
     Dates: start: 20230315, end: 20230315
  42. METARAMINOL [Concomitant]
     Active Substance: METARAMINOL
     Route: 042
     Dates: start: 20230315, end: 20230315
  43. METARAMINOL [Concomitant]
     Active Substance: METARAMINOL
     Route: 042
     Dates: start: 20230315, end: 20230315
  44. NOREPINEPHRINE [Concomitant]
     Active Substance: NOREPINEPHRINE
     Indication: Hypotension
     Route: 042
     Dates: start: 20230315
  45. NYSTATIN [Concomitant]
     Active Substance: NYSTATIN
     Indication: Candida infection
     Route: 061
     Dates: start: 20230315, end: 20230318
  46. ONDANSETRON [Concomitant]
     Active Substance: ONDANSETRON
     Indication: Nausea
     Route: 060
     Dates: start: 20230315, end: 20230315
  47. POTASSIUM CHLORIDE [Concomitant]
     Active Substance: POTASSIUM CHLORIDE
     Indication: Hypokalaemia
     Route: 042
     Dates: start: 20230315, end: 20230315
  48. ALBUTEROL [Concomitant]
     Active Substance: ALBUTEROL
     Indication: Wheezing
     Route: 055
     Dates: start: 20230315

REACTIONS (1)
  - Neutropenic sepsis [Not Recovered/Not Resolved]

NARRATIVE: CASE EVENT DATE: 20230315
